FAERS Safety Report 7807171-5 (Version None)
Quarter: 2011Q4

REPORT INFORMATION
  Report Type: 
  Country: None (occurrence: None)
  Receive Date: 20111011
  Receipt Date: 20111004
  Transmission Date: 20120403
  Serious: Yes (Death, Life-Threatening, Hospitalization, Disabling)
  Sender: FDA-Public Use
  Company Number: PHHY2011US88540

PATIENT
  Sex: Male
  Weight: 57 kg

DRUGS (2)
  1. MYFORTIC [Suspect]
     Indication: RENAL TRANSPLANT
     Dosage: 1000 MG, UNK
     Route: 048
     Dates: start: 20091230, end: 20100425
  2. PROGRAF [Concomitant]
     Dosage: UNK UKN, UNK

REACTIONS (8)
  - KLEBSIELLA INFECTION [None]
  - OLIGURIA [None]
  - DYSPNOEA [None]
  - SEPTIC SHOCK [None]
  - PRODUCTIVE COUGH [None]
  - CARDIOGENIC SHOCK [None]
  - COUGH [None]
  - RENAL TUBULAR NECROSIS [None]
